FAERS Safety Report 9368941 (Version 1)
Quarter: 2013Q2

REPORT INFORMATION
  Report Type: Spontaneous
  Country: US (occurrence: None)
  Receive Date: 20130613
  Receipt Date: 20130613
  Transmission Date: 20140414
  Serious: Yes (Death, Hospitalization, Other)
  Sender: FDA-Public Use
  Company Number: 2013PROUSA02820

PATIENT
  Age: 84 Year
  Sex: Male
  Weight: 81.2 kg

DRUGS (6)
  1. PROVENGE (SIPULEUCEL-T) SUSPENSION, 250ML [Suspect]
     Indication: PROSTATE CANCER METASTATIC
     Dosage: 250 ML, SINGLE, INTRAVENOUS
     Route: 042
     Dates: start: 20130308, end: 20130308
  2. DIOVAN (VALSARTAN) [Concomitant]
  3. FUROSEMIDE (FUROSEMIDE) [Concomitant]
  4. MEGACE [Concomitant]
  5. SIMVASTATIN [Concomitant]
  6. NORCO [Concomitant]

REACTIONS (17)
  - Hypotonia [None]
  - Prostate cancer metastatic [None]
  - Malignant neoplasm progression [None]
  - Chest discomfort [None]
  - Thrombocytopenia [None]
  - Leukopenia [None]
  - Depression [None]
  - Dyspnoea [None]
  - Asthenia [None]
  - Haematuria [None]
  - Haemorrhagic anaemia [None]
  - Oncologic complication [None]
  - Pleural effusion [None]
  - Neoplasm malignant [None]
  - Lung disorder [None]
  - Unresponsive to stimuli [None]
  - Musculoskeletal disorder [None]
